FAERS Safety Report 19747262 (Version 1)
Quarter: 2021Q3

REPORT INFORMATION
  Report Type: Other
  Country: GB (occurrence: GB)
  Receive Date: 20210826
  Receipt Date: 20210826
  Transmission Date: 20211014
  Serious: Yes (Other)
  Sender: FDA-Public Use
  Company Number: GB-LUPIN PHARMACEUTICALS INC.-2021-15600

PATIENT
  Age: 28 Year
  Sex: Female
  Weight: 87 kg

DRUGS (2)
  1. DESOGESTREL [Concomitant]
     Active Substance: DESOGESTREL
     Indication: ILL-DEFINED DISORDER
     Dosage: 1 DOSAGE FORM, QD
     Route: 065
     Dates: start: 20210727
  2. SERTRALINE [Suspect]
     Active Substance: SERTRALINE HYDROCHLORIDE
     Indication: PRODUCT USED FOR UNKNOWN INDICATION
     Dosage: 50 MG, QD
     Route: 065
     Dates: start: 20210702

REACTIONS (1)
  - Diarrhoea [Recovered/Resolved]

NARRATIVE: CASE EVENT DATE: 20210810
